FAERS Safety Report 12254672 (Version 1)
Quarter: 2016Q2

REPORT INFORMATION
  Report Type: Spontaneous
  Country: US (occurrence: US)
  Receive Date: 20160411
  Receipt Date: 20160411
  Transmission Date: 20160815
  Serious: No
  Sender: FDA-Public Use
  Company Number: US-SA-2015SA182252

PATIENT
  Age: 57 Year
  Sex: Female

DRUGS (1)
  1. ALLEGRA-D [Suspect]
     Active Substance: FEXOFENADINE\PSEUDOEPHEDRINE
     Route: 048

REACTIONS (8)
  - Paranasal sinus discomfort [Unknown]
  - Feeling jittery [Unknown]
  - Tremor [Unknown]
  - Feeling abnormal [Unknown]
  - Rhinorrhoea [Unknown]
  - Headache [Unknown]
  - Drug intolerance [Unknown]
  - Insomnia [Unknown]
